FAERS Safety Report 5790694-0 (Version None)
Quarter: 2008Q2

REPORT INFORMATION
  Report Type: 
  Country: None (occurrence: None)
  Receive Date: 20080626
  Receipt Date: 20080505
  Transmission Date: 20081010
  Serious: No
  Sender: FDA-Public Use
  Company Number: A0726259A

PATIENT
  Sex: Female

DRUGS (2)
  1. ALLI [Suspect]
  2. PAIN MEDICATIONS [Concomitant]

REACTIONS (2)
  - ANOREXIA [None]
  - FEELING ABNORMAL [None]
